FAERS Safety Report 7787613-4 (Version None)
Quarter: 2011Q3

REPORT INFORMATION
  Report Type: 
  Country: None (occurrence: None)
  Receive Date: 20110929
  Receipt Date: 20110321
  Transmission Date: 20111222
  Serious: Yes (Hospitalization, Other)
  Sender: FDA-Public Use
  Company Number: US-BAYER-2010-002086

PATIENT
  Sex: Female
  Weight: 102.4 kg

DRUGS (1)
  1. YASMIN [Suspect]
     Dosage: UNK
     Dates: start: 20050101, end: 20090801

REACTIONS (2)
  - GALLBLADDER DISORDER [None]
  - CHOLECYSTITIS ACUTE [None]
